FAERS Safety Report 18523497 (Version 4)
Quarter: 2021Q2

REPORT INFORMATION
  Report Type: Spontaneous
  Country: JP (occurrence: JP)
  Receive Date: 20201119
  Receipt Date: 20210624
  Transmission Date: 20210717
  Serious: Yes (Other)
  Sender: FDA-Public Use
  Company Number: JP-BAYER-2020-245717

PATIENT
  Age: 66 Year
  Sex: Male
  Weight: 74.4 kg

DRUGS (15)
  1. STIVARGA [Suspect]
     Active Substance: REGORAFENIB
     Indication: RECTAL CANCER RECURRENT
     Dosage: DAILY DOSE 3 DF
     Route: 048
     Dates: start: 20200916, end: 20200924
  2. MICARDIS [Concomitant]
     Active Substance: TELMISARTAN
     Dosage: DAILY DOSE 80 MG, 1 TABLET
     Route: 048
  3. BEVACIZUMAB. [Concomitant]
     Active Substance: BEVACIZUMAB
  4. STIVARGA [Suspect]
     Active Substance: REGORAFENIB
     Indication: RECTAL CANCER RECURRENT
     Dosage: DAILY DOSE 3 DF
     Route: 048
     Dates: start: 20201014, end: 20201024
  5. METGLUCO [Concomitant]
     Active Substance: METFORMIN HYDROCHLORIDE
  6. NESINA [Concomitant]
     Active Substance: ALOGLIPTIN BENZOATE
  7. STIVARGA [Suspect]
     Active Substance: REGORAFENIB
     Indication: RECTAL CANCER RECURRENT
     Dosage: DAILY DOSE 3 DF
     Route: 048
     Dates: start: 20200927, end: 20200930
  8. WARFARIN [Concomitant]
     Active Substance: WARFARIN
     Dosage: DAILY DOSE 7 TABLETS
     Route: 048
  9. AMLODIPINE OD TYK [Concomitant]
     Active Substance: AMLODIPINE BESYLATE
     Dosage: DAILY DOSE 7.5 MG
  10. LANSOPRAZOLE. [Concomitant]
     Active Substance: LANSOPRAZOLE
     Dosage: DAILY DOSE 115 MG
     Route: 048
  11. MIYA?BM [Concomitant]
     Active Substance: CLOSTRIDIUM BUTYRICUM SPORES STRAIN M-55
     Indication: PROPHYLAXIS
     Dosage: DAILY DOSE 60 MG, 3 TABLETS
     Route: 048
     Dates: start: 20200923
  12. NORVASC [Concomitant]
     Active Substance: AMLODIPINE BESYLATE
     Dosage: DAILY DOSE 5 MG
     Route: 048
  13. BAYASPIRIN 100 MG [Concomitant]
     Active Substance: ASPIRIN
  14. BISOPROLOL FUMARATE. [Concomitant]
     Active Substance: BISOPROLOL FUMARATE
     Dosage: DAILY DOSE 1.25 MG, 2 TABLETS
     Route: 048
  15. URSODEOXYCHOLIC ACID [Concomitant]
     Active Substance: URSODIOL
     Indication: PROPHYLAXIS
     Dosage: DAILY DOSE 100 MG, 3 TABLETS
     Route: 048

REACTIONS (13)
  - Altered state of consciousness [Recovered/Resolved]
  - Intentional product use issue [None]
  - Delirium [Recovered/Resolved]
  - Diarrhoea [Recovered/Resolved]
  - Pyrexia [None]
  - Inappropriate schedule of product administration [None]
  - Depressed level of consciousness [Recovered/Resolved]
  - Amnesia [Recovered/Resolved]
  - Disorientation [Recovered/Resolved]
  - Dysphonia [Recovered/Resolved]
  - Hyporesponsive to stimuli [Recovered/Resolved]
  - Cognitive disorder [Recovered/Resolved]
  - Off label use [None]

NARRATIVE: CASE EVENT DATE: 202009
